FAERS Safety Report 25159985 (Version 1)
Quarter: 2025Q2

REPORT INFORMATION
  Report Type: Spontaneous
  Country: PT (occurrence: PT)
  Receive Date: 20250404
  Receipt Date: 20250404
  Transmission Date: 20250717
  Serious: Yes (Hospitalization)
  Sender: Norvium Bioscience
  Company Number: PT-Norvium Bioscience LLC-080035

PATIENT
  Age: 75 Year
  Sex: Male

DRUGS (1)
  1. VENLAFAXINE HYDROCHLORIDE [Suspect]
     Active Substance: VENLAFAXINE HYDROCHLORIDE
     Indication: Generalised anxiety disorder

REACTIONS (2)
  - Eosinophilic pleural effusion [Recovered/Resolved]
  - Eosinophilia [Recovered/Resolved]
